FAERS Safety Report 14882078 (Version 2)
Quarter: 2018Q2

REPORT INFORMATION
  Report Type: Report from Study
  Country: US (occurrence: US)
  Receive Date: 20180511
  Receipt Date: 20180529
  Transmission Date: 20180711
  Serious: Yes (Hospitalization, Other)
  Sender: FDA-Public Use
  Company Number: US-GILEAD-2018-0337781

PATIENT
  Age: 84 Year
  Sex: Male
  Weight: 84.54 kg

DRUGS (26)
  1. LEVOFLOXACINE                      /01278901/ [Concomitant]
     Active Substance: LEVOFLOXACIN
  2. MAG OXIDE [Concomitant]
     Active Substance: MAGNESIUM OXIDE
  3. METOLAZONE. [Concomitant]
     Active Substance: METOLAZONE
  4. OXYCODONE [Concomitant]
     Active Substance: OXYCODONE
  5. WARFARIN [Concomitant]
     Active Substance: WARFARIN
  6. AMBRISENTAN [Suspect]
     Active Substance: AMBRISENTAN
     Indication: PULMONARY HYPERTENSION
     Dosage: 5 MG, QD
     Route: 048
     Dates: start: 201301
  7. TAMSULOSIN [Concomitant]
     Active Substance: TAMSULOSIN
  8. ALLOPURINOL. [Concomitant]
     Active Substance: ALLOPURINOL
  9. ARFORMOTEROL [Concomitant]
     Active Substance: ARFORMOTEROL
  10. SYMBICORT [Concomitant]
     Active Substance: BUDESONIDE\FORMOTEROL FUMARATE DIHYDRATE
  11. LORATADINE. [Concomitant]
     Active Substance: LORATADINE
  12. METOPROLOL. [Concomitant]
     Active Substance: METOPROLOL
  13. MORPHINE [Concomitant]
     Active Substance: MORPHINE
  14. STIOLTO RESPIMAT [Concomitant]
     Active Substance: OLODATEROL HYDROCHLORIDE\TIOTROPIUM BROMIDE MONOHYDRATE
  15. OXYGEN. [Concomitant]
     Active Substance: OXYGEN
  16. TYVASO [Concomitant]
     Active Substance: TREPROSTINIL
  17. ADEMPAS [Concomitant]
     Active Substance: RIOCIGUAT
  18. COUMADIN [Concomitant]
     Active Substance: WARFARIN SODIUM
  19. COLCHICINE. [Concomitant]
     Active Substance: COLCHICINE
  20. ALBUTEROL                          /00139501/ [Concomitant]
     Active Substance: ALBUTEROL
  21. PREDNISONE. [Concomitant]
     Active Substance: PREDNISONE
  22. LEVALBUTEROL                       /01419301/ [Concomitant]
     Active Substance: LEVALBUTEROL
  23. SPIRONOLACTONE. [Concomitant]
     Active Substance: SPIRONOLACTONE
  24. CHOLECALCIFEROL [Concomitant]
     Active Substance: CHOLECALCIFEROL
  25. POTASSIUM CHLORIDE. [Concomitant]
     Active Substance: POTASSIUM CHLORIDE
  26. TORSEMIDE. [Concomitant]
     Active Substance: TORSEMIDE

REACTIONS (4)
  - Pneumonia [Recovered/Resolved]
  - Fluid retention [Unknown]
  - Urinary retention [Recovered/Resolved]
  - Oedema [Recovered/Resolved]

NARRATIVE: CASE EVENT DATE: 20180424
